FAERS Safety Report 10270199 (Version 1)
Quarter: 2014Q2

REPORT INFORMATION
  Report Type: Spontaneous
  Country: IT (occurrence: None)
  Receive Date: 20140627
  Receipt Date: 20140627
  Transmission Date: 20141212
  Serious: Yes (Other)
  Sender: FDA-Public Use
  Company Number: AUR-APL-2014-06812

PATIENT
  Sex: Male

DRUGS (1)
  1. IRBESARTAN (IRBESARTAN) [Suspect]
     Indication: PRODUCT USED FOR UNKNOWN INDICATION

REACTIONS (3)
  - Malaise [None]
  - Loss of consciousness [None]
  - Hyperhidrosis [None]
